FAERS Safety Report 19889425 (Version 1)
Quarter: 2021Q3

REPORT INFORMATION
  Report Type: Report from Study
  Country: US (occurrence: US)
  Receive Date: 20210927
  Receipt Date: 20210927
  Transmission Date: 20211014
  Serious: Yes (Other)
  Sender: FDA-Public Use
  Company Number: US-ASTRAZENECA-2021A724878

PATIENT
  Age: 58 Year
  Sex: Female
  Weight: 75.3 kg

DRUGS (1)
  1. TAGRISSO [Suspect]
     Active Substance: OSIMERTINIB
     Indication: NON-SMALL CELL LUNG CANCER STAGE I
     Route: 048
     Dates: start: 20210728

REACTIONS (4)
  - Pneumonitis [Unknown]
  - Productive cough [Unknown]
  - Sputum discoloured [Unknown]
  - Chest pain [Unknown]
